FAERS Safety Report 5847468-1 (Version None)
Quarter: 2008Q3

REPORT INFORMATION
  Report Type: 
  Country: None (occurrence: None)
  Receive Date: 20080813
  Receipt Date: 20080808
  Transmission Date: 20090109
  Serious: Yes (Death)
  Sender: FDA-Public Use
  Company Number: 2008JP003670

PATIENT
  Age: 2 Year
  Sex: Female

DRUGS (4)
  1. FUNGUARD(MICAFUNGIN INJECTION)(MICAFUNGIN) INJECTION [Suspect]
     Indication: PNEUMONIA FUNGAL
     Dosage: 30 MG, IV DRIP
     Route: 041
     Dates: start: 20080409, end: 20080417
  2. PRODIF(FOSFLUCONAZOLE) INJECTION [Suspect]
     Dosage: 400 MG, IV NOS
     Route: 042
     Dates: start: 20080408, end: 20080410
  3. VFEND [Suspect]
     Dosage: 50 MG, IV NOS
     Route: 042
     Dates: start: 20080416, end: 20080417
  4. CARBENIN(BETAMIPRON, PANIPENEM) INJECTION [Suspect]
     Dosage: IV NOS
     Route: 042
     Dates: start: 20080407, end: 20080417

REACTIONS (1)
  - DEATH [None]
